FAERS Safety Report 9230852 (Version 2)
Quarter: 2013Q2

REPORT INFORMATION
  Report Type: Spontaneous
  Country: GB (occurrence: None)
  Receive Date: 20130411
  Receipt Date: 20130423
  Transmission Date: 20140414
  Serious: Yes (Disabling)
  Sender: FDA-Public Use
  Company Number: AUR-APL-2013-02842

PATIENT
  Age: 39 Year
  Sex: Female
  Weight: 69.85 kg

DRUGS (2)
  1. CITALOPRAM (CITALOPRAM) [Suspect]
     Indication: ANXIETY
     Dosage: (20 MG), ORAL
     Route: 048
     Dates: start: 20130131
  2. CITALOPRAM (CITALOPRAM) [Suspect]
     Indication: DEPRESSION
     Dosage: (20 MG), ORAL
     Route: 048
     Dates: start: 20130131

REACTIONS (4)
  - Oropharyngeal pain [None]
  - Vaginal haemorrhage [None]
  - Malaise [None]
  - Haemoglobin decreased [None]
